FAERS Safety Report 12430947 (Version 1)
Quarter: 2016Q2

REPORT INFORMATION
  Report Type: Report from Study
  Country: CA (occurrence: CA)
  Receive Date: 20160602
  Receipt Date: 20160602
  Transmission Date: 20160815
  Serious: Yes (Other)
  Sender: FDA-Public Use
  Company Number: CA-AMGEN-CANSP2014016405

PATIENT
  Age: 67 Year
  Sex: Female

DRUGS (16)
  1. ORENCIA [Suspect]
     Active Substance: ABATACEPT
     Indication: PRODUCT USED FOR UNKNOWN INDICATION
     Dosage: UNK
     Route: 065
  2. FUROSEMIDE. [Concomitant]
     Active Substance: FUROSEMIDE
     Dosage: 40 MG, QD
  3. MORPHINE [Concomitant]
     Active Substance: MORPHINE
     Dosage: UNK UNK, AS NECESSARY
  4. ENBREL [Suspect]
     Active Substance: ETANERCEPT
     Indication: RHEUMATOID ARTHRITIS
     Dosage: 50 MG, UNK
     Route: 065
     Dates: start: 20130405, end: 20131011
  5. PLAQUENIL [Suspect]
     Active Substance: HYDROXYCHLOROQUINE SULFATE
     Indication: PRODUCT USED FOR UNKNOWN INDICATION
     Dosage: UNK
     Route: 065
  6. XALATAN [Concomitant]
     Active Substance: LATANOPROST
     Dosage: 50 MUG, QD, (50 MCG 0.005% 1 DROP)
  7. CALCIUM [Concomitant]
     Active Substance: CALCIUM
     Dosage: 500 MG, QD
  8. COSOPT [Concomitant]
     Active Substance: DORZOLAMIDE HYDROCHLORIDE\TIMOLOL MALEATE
     Dosage: UNK, BID
  9. ACTEMRA [Suspect]
     Active Substance: TOCILIZUMAB
     Indication: PRODUCT USED FOR UNKNOWN INDICATION
     Dosage: UNK
     Route: 065
  10. METHOTREXATE [Suspect]
     Active Substance: METHOTREXATE
     Indication: RHEUMATOID ARTHRITIS
     Dosage: UNK
     Route: 065
  11. VALSARTAN. [Concomitant]
     Active Substance: VALSARTAN
     Dosage: 320 MG, QD
  12. GRAVOL GINGER [Concomitant]
     Dosage: 500 MG, UNK, AS NEEDED
  13. CIMZIA [Suspect]
     Active Substance: CERTOLIZUMAB PEGOL
     Indication: PRODUCT USED FOR UNKNOWN INDICATION
     Dosage: UNK
     Route: 065
  14. ESTROGEL [Concomitant]
     Active Substance: ESTRADIOL
     Dosage: 0.6 %, TID
  15. VITAMIN D [Concomitant]
     Active Substance: CHOLECALCIFEROL
     Dosage: 10000 UNIT, QWK
  16. POTASSIUM CHLORIDE. [Concomitant]
     Active Substance: POTASSIUM CHLORIDE
     Dosage: 1500 MG, QD

REACTIONS (9)
  - Diverticulitis [Unknown]
  - Glaucoma [Unknown]
  - Adverse event [Unknown]
  - C-reactive protein increased [Unknown]
  - Drug intolerance [Unknown]
  - Bronchitis [Unknown]
  - Synovitis [Unknown]
  - Drug ineffective [Unknown]
  - Colitis microscopic [Unknown]

NARRATIVE: CASE EVENT DATE: 2016
